FAERS Safety Report 18161893 (Version 2)
Quarter: 2022Q2

REPORT INFORMATION
  Report Type: Spontaneous
  Country: US (occurrence: US)
  Receive Date: 20200818
  Receipt Date: 20220401
  Transmission Date: 20220720
  Serious: Yes (Death, Other)
  Sender: FDA-Public Use
  Company Number: US-GLAXOSMITHKLINE-US2020164543

PATIENT
  Sex: Male

DRUGS (17)
  1. ZANTAC [Suspect]
     Active Substance: RANITIDINE HYDROCHLORIDE
     Indication: Product used for unknown indication
     Dosage: UNK
     Route: 065
     Dates: start: 20050115, end: 20120115
  2. ZANTAC [Suspect]
     Active Substance: RANITIDINE HYDROCHLORIDE
     Indication: Dyspepsia
     Dosage: UNKNOWN AT THIS TIME, QD
     Route: 065
     Dates: start: 200001, end: 201201
  3. ZANTAC [Suspect]
     Active Substance: RANITIDINE HYDROCHLORIDE
     Indication: Abdominal discomfort
  4. ZANTAC [Suspect]
     Active Substance: RANITIDINE HYDROCHLORIDE
     Indication: Flatulence
  5. ZANTAC [Suspect]
     Active Substance: RANITIDINE HYDROCHLORIDE
     Indication: Abdominal distension
  6. ZANTAC [Suspect]
     Active Substance: RANITIDINE HYDROCHLORIDE
     Indication: Dyspepsia
     Dosage: UNKNOWN AT THIS TIME, QD
     Route: 065
     Dates: start: 200001, end: 201201
  7. ZANTAC [Suspect]
     Active Substance: RANITIDINE HYDROCHLORIDE
     Indication: Abdominal discomfort
  8. ZANTAC [Suspect]
     Active Substance: RANITIDINE HYDROCHLORIDE
     Indication: Flatulence
  9. ZANTAC [Suspect]
     Active Substance: RANITIDINE HYDROCHLORIDE
     Indication: Abdominal distension
  10. RANITIDINE [Suspect]
     Active Substance: RANITIDINE
     Indication: Dyspepsia
     Dosage: UNKNOWN AT THIS TIME, QD
     Route: 065
     Dates: start: 200001, end: 201201
  11. RANITIDINE [Suspect]
     Active Substance: RANITIDINE
     Indication: Abdominal discomfort
  12. RANITIDINE [Suspect]
     Active Substance: RANITIDINE
     Indication: Flatulence
  13. RANITIDINE [Suspect]
     Active Substance: RANITIDINE
     Indication: Abdominal distension
  14. RANITIDINE [Suspect]
     Active Substance: RANITIDINE
     Indication: Dyspepsia
     Dosage: UNKNOWN AT THIS TIME, QD
     Route: 065
     Dates: start: 200001, end: 201201
  15. RANITIDINE [Suspect]
     Active Substance: RANITIDINE
     Indication: Abdominal discomfort
  16. RANITIDINE [Suspect]
     Active Substance: RANITIDINE
     Indication: Flatulence
  17. RANITIDINE [Suspect]
     Active Substance: RANITIDINE
     Indication: Abdominal distension

REACTIONS (1)
  - Gastrointestinal carcinoma [Fatal]
